FAERS Safety Report 8920197 (Version 1)
Quarter: 2012Q4

REPORT INFORMATION
  Report Type: 
  Country: BR (occurrence: BR)
  Receive Date: 20121122
  Receipt Date: 20121122
  Transmission Date: 20130627
  Serious: Yes (Death, Hospitalization, Other)
  Sender: FDA-Public Use
  Company Number: PHHY2012BR105293

PATIENT
  Age: 79 Year
  Sex: Male

DRUGS (5)
  1. FORASEQ [Suspect]
     Indication: DYSPNOEA
     Dosage: 1 DF, QD
  2. LOSARTAN POTASSIUM [Concomitant]
     Indication: CARDIAC DISORDER
  3. DIGOXINE [Concomitant]
     Indication: CARDIAC DISORDER
  4. NEOSEMID//FUROSEMIDE [Concomitant]
     Indication: DIURETIC THERAPY
  5. MARCOUMAR [Concomitant]
     Indication: ANTICOAGULANT THERAPY

REACTIONS (2)
  - Gastric haemorrhage [Fatal]
  - Gastric ulcer [Unknown]
